FAERS Safety Report 19137658 (Version 1)
Quarter: 2021Q2

REPORT INFORMATION
  Report Type: Report from Study
  Country: US (occurrence: US)
  Receive Date: 20210414
  Receipt Date: 20210414
  Transmission Date: 20210717
  Serious: Yes (Hospitalization, Other)
  Sender: FDA-Public Use
  Company Number: US-HORIZON-KRY-PRE-0065-2017

PATIENT

DRUGS (6)
  1. INDOMETHACIN AGILA [Concomitant]
     Active Substance: INDOMETHACIN SODIUM
     Indication: DIABETES MELLITUS
  2. RAYOS [Suspect]
     Active Substance: PREDNISONE
  3. ATORVASTATIN [Concomitant]
     Active Substance: ATORVASTATIN
     Indication: DIABETES MELLITUS
  4. KRYSTEXXA [Suspect]
     Active Substance: PEGLOTICASE
     Dosage: EVERY 2 WEEKS
     Route: 042
     Dates: start: 20170516, end: 20170521
  5. SYNTHROID [Concomitant]
     Active Substance: LEVOTHYROXINE SODIUM
     Indication: DIABETES MELLITUS
  6. OXYBUTYNIN. [Concomitant]
     Active Substance: OXYBUTYNIN CHLORIDE
     Indication: DIABETES MELLITUS

REACTIONS (10)
  - Pharyngeal ulceration [Unknown]
  - Diarrhoea [Unknown]
  - Vomiting [Unknown]
  - Hormone level abnormal [Unknown]
  - Postmenopausal haemorrhage [Unknown]
  - Renal failure [Unknown]
  - Dehydration [Unknown]
  - Urticaria [Unknown]
  - Gout [Recovered/Resolved]
  - Heart rate increased [Unknown]
